FAERS Safety Report 11184560 (Version 2)
Quarter: 2015Q3

REPORT INFORMATION
  Report Type: Report from Study
  Country: GB (occurrence: GB)
  Receive Date: 20150610
  Receipt Date: 20150722
  Transmission Date: 20151125
  Serious: Yes (Hospitalization)
  Sender: FDA-Public Use
  Company Number: 2014MPI00812

PATIENT

DRUGS (6)
  1. DOXORUBICIN [Suspect]
     Active Substance: DOXORUBICIN
     Indication: HODGKIN^S DISEASE
  2. VINBLASTINE [Suspect]
     Active Substance: VINBLASTINE
     Indication: HODGKIN^S DISEASE
     Dosage: 10 MG, UNK
     Route: 042
     Dates: start: 20140210, end: 20140624
  3. DACARBAZINE. [Suspect]
     Active Substance: DACARBAZINE
     Indication: HODGKIN^S DISEASE
     Dosage: 600 MG, UNK
     Route: 042
     Dates: start: 20140210, end: 20140624
  4. DOXORUBICIN [Suspect]
     Active Substance: DOXORUBICIN
     Indication: HODGKIN^S DISEASE
     Dosage: 40 MG, UNK
     Route: 042
     Dates: start: 20140210, end: 20140624
  5. BRENTUXIMAB VEDOTIN [Suspect]
     Active Substance: BRENTUXIMAB VEDOTIN
     Indication: HODGKIN^S DISEASE
     Dosage: 68 MG, UNK
     Route: 042
     Dates: start: 20140210, end: 20140624
  6. BRENTUXIMAB VEDOTIN [Suspect]
     Active Substance: BRENTUXIMAB VEDOTIN
     Indication: HODGKIN^S DISEASE

REACTIONS (8)
  - Fatigue [None]
  - Haemoglobin decreased [None]
  - Device related infection [Not Recovered/Not Resolved]
  - Neutropenic sepsis [None]
  - Pain in extremity [None]
  - Abdominal pain [None]
  - Pyrexia [None]
  - Constipation [None]

NARRATIVE: CASE EVENT DATE: 20140627
